FAERS Safety Report 8532064 (Version 7)
Quarter: 2013Q4

REPORT INFORMATION
  Report Type: Report from Study
  Country: US (occurrence: US)
  Receive Date: 20120426
  Receipt Date: 20131217
  Transmission Date: 20140711
  Serious: Yes (Hospitalization)
  Sender: FDA-Public Use
  Company Number: US-ROCHE-GNE309791

PATIENT
  Age: 42 Year
  Sex: Female
  Weight: 93.98 kg

DRUGS (12)
  1. OMALIZUMAB [Suspect]
     Indication: ASTHMA
     Dosage: 150 MG, Q4W
     Route: 058
     Dates: start: 20100320
  2. OMALIZUMAB [Suspect]
     Route: 065
     Dates: start: 20110917
  3. LOHIST-12D [Concomitant]
     Indication: HYPERSENSITIVITY
  4. ZYRTEC [Concomitant]
     Indication: HYPERSENSITIVITY
     Dosage: UNK
     Route: 065
  5. SINGULAIR [Concomitant]
     Indication: ASTHMA
  6. SYMBICORT [Concomitant]
     Indication: ASTHMA
     Dosage: UNK
     Route: 065
  7. FLONASE [Concomitant]
     Indication: HYPERSENSITIVITY
  8. RHINOCORT [Concomitant]
     Indication: HYPERSENSITIVITY
     Dosage: UNK
     Route: 065
  9. TYLENOL [Concomitant]
     Indication: HEADACHE
     Route: 065
  10. ADVIL [Concomitant]
     Indication: HEADACHE
     Route: 065
  11. CLARITIN [Concomitant]
  12. XOPENEX HFA [Concomitant]

REACTIONS (2)
  - Gestational hypertension [Not Recovered/Not Resolved]
  - Exposure during pregnancy [Unknown]
